FAERS Safety Report 6450766-4 (Version None)
Quarter: 2009Q4

REPORT INFORMATION
  Report Type: 
  Country: None (occurrence: None)
  Receive Date: 20091123
  Receipt Date: 20091109
  Transmission Date: 20100525
  Serious: Yes (Hospitalization, Disabling, Other)
  Sender: FDA-Public Use
  Company Number: US-CELGENEUS-163-21880-09031607

PATIENT
  Sex: Female

DRUGS (19)
  1. REVLIMID [Suspect]
     Route: 048
     Dates: start: 20080801, end: 20080801
  2. REVLIMID [Suspect]
     Route: 048
     Dates: start: 20081101, end: 20090309
  3. REVLIMID [Suspect]
     Route: 048
     Dates: start: 20090315, end: 20090427
  4. REVLIMID [Suspect]
     Route: 048
     Dates: start: 20090518
  5. DEXAMETHASONE [Suspect]
     Route: 065
     Dates: start: 20090801
  6. DOXIL [Suspect]
     Route: 065
     Dates: start: 20081001
  7. VELCADE [Suspect]
     Indication: MULTIPLE MYELOMA
     Route: 065
     Dates: start: 20090801
  8. FLAGYL [Concomitant]
     Indication: DRUG USE FOR UNKNOWN INDICATION
     Route: 065
  9. FENTANYL-100 [Concomitant]
     Indication: DRUG USE FOR UNKNOWN INDICATION
     Route: 065
  10. DIFLUCAN [Concomitant]
     Indication: DRUG USE FOR UNKNOWN INDICATION
     Route: 065
  11. DIFLUCAN [Concomitant]
     Route: 065
  12. ALLOPURINOL [Concomitant]
     Indication: DRUG USE FOR UNKNOWN INDICATION
     Route: 065
  13. VICODIN [Concomitant]
     Indication: DRUG USE FOR UNKNOWN INDICATION
     Route: 065
  14. NEXIUM [Concomitant]
     Indication: DRUG USE FOR UNKNOWN INDICATION
     Route: 065
  15. WELLBUTRIN [Concomitant]
     Indication: DRUG USE FOR UNKNOWN INDICATION
     Route: 065
  16. LYRICA [Concomitant]
     Indication: DRUG USE FOR UNKNOWN INDICATION
     Route: 065
  17. VITAMIN D [Concomitant]
     Indication: DRUG USE FOR UNKNOWN INDICATION
     Route: 065
  18. DURAGASIC [Concomitant]
     Indication: DRUG USE FOR UNKNOWN INDICATION
     Route: 065
  19. LOMOTIL [Concomitant]
     Indication: DRUG USE FOR UNKNOWN INDICATION
     Route: 065

REACTIONS (20)
  - ASTHENIA [None]
  - BLOOD PRESSURE INCREASED [None]
  - DEEP VEIN THROMBOSIS [None]
  - FATIGUE [None]
  - GENITAL HERPES [None]
  - HYPOCALCAEMIA [None]
  - HYPOKALAEMIA [None]
  - HYPOMAGNESAEMIA [None]
  - INTERNATIONAL NORMALISED RATIO INCREASED [None]
  - MULTIPLE MYELOMA [None]
  - MYOPATHY [None]
  - NAUSEA [None]
  - NEUROPATHY PERIPHERAL [None]
  - ORAL CANDIDIASIS [None]
  - PANCYTOPENIA [None]
  - PNEUMONIA [None]
  - PURPURA [None]
  - RENAL FAILURE ACUTE [None]
  - SKIN ULCER [None]
  - UROSEPSIS [None]
